FAERS Safety Report 17391798 (Version 2)
Quarter: 2020Q1

REPORT INFORMATION
  Report Type: Spontaneous
  Country: US (occurrence: US)
  Receive Date: 20200207
  Receipt Date: 20200207
  Transmission Date: 20200409
  Serious: No
  Sender: FDA-Public Use
  Company Number: US-JNJFOC-20200124973

PATIENT
  Sex: Male
  Weight: 23.61 kg

DRUGS (1)
  1. CHILDRENS TYLENOL [Suspect]
     Active Substance: ACETAMINOPHEN
     Indication: PAIN IN EXTREMITY
     Dosage: 2 TABLETS ONCE A DAILY
     Route: 048

REACTIONS (1)
  - Reaction to excipient [Recovered/Resolved]
